FAERS Safety Report 19577006 (Version 1)
Quarter: 2021Q3

REPORT INFORMATION
  Report Type: Spontaneous
  Country: US (occurrence: US)
  Receive Date: 20210719
  Receipt Date: 20210719
  Transmission Date: 20211014
  Serious: No
  Sender: FDA-Public Use
  Company Number: US-GLENMARK PHARMACEUTICALS-2020GMK049245

PATIENT

DRUGS (1)
  1. MUPIROCIN OINTMENT USP, 2% [Suspect]
     Active Substance: MUPIROCIN
     Indication: BACTERIAL DISEASE CARRIER
     Dosage: UNK, BID (PRESCRIBED TWICE A DAY FOR 5 DAYS; ROUTE: INTRANASAL)
     Route: 045

REACTIONS (2)
  - Product use in unapproved indication [Unknown]
  - Product use issue [Unknown]
